FAERS Safety Report 18610093 (Version 1)
Quarter: 2020Q4

REPORT INFORMATION
  Report Type: Spontaneous
  Country: FR (occurrence: FR)
  Receive Date: 20201214
  Receipt Date: 20201214
  Transmission Date: 20210114
  Serious: Yes (Hospitalization)
  Sender: FDA-Public Use
  Company Number: FR-GLAXOSMITHKLINE-FR2020243615

PATIENT
  Age: 21 Month
  Sex: Male
  Weight: 11 kg

DRUGS (3)
  1. LAMICTAL [Suspect]
     Active Substance: LAMOTRIGINE
     Indication: ACCIDENTAL EXPOSURE TO PRODUCT
     Dosage: 20 MG, SINGLE (TOTAL)
     Route: 048
     Dates: start: 20200301, end: 20200301
  2. LAMICTAL [Suspect]
     Active Substance: LAMOTRIGINE
     Indication: ACCIDENTAL EXPOSURE TO PRODUCT
     Dosage: 100 MG, SINGLE (TOTAL)
     Route: 048
     Dates: start: 20200301, end: 20200301
  3. LAMICTAL [Suspect]
     Active Substance: LAMOTRIGINE
     Indication: ACCIDENTAL EXPOSURE TO PRODUCT
     Dosage: 25 MG, SINGLE (TOTAL)
     Route: 048
     Dates: start: 20200301, end: 20200301

REACTIONS (3)
  - Tremor [Recovered/Resolved]
  - Somnolence [Recovered/Resolved]
  - Balance disorder [Recovered/Resolved]

NARRATIVE: CASE EVENT DATE: 20200301
